FAERS Safety Report 25641774 (Version 1)
Quarter: 2025Q3

REPORT INFORMATION
  Report Type: Spontaneous
  Country: US (occurrence: US)
  Receive Date: 20250804
  Receipt Date: 20250804
  Transmission Date: 20251020
  Serious: Yes (Hospitalization)
  Sender: MERCK SHARP & DOHME LLC
  Company Number: US-009507513-2315933

PATIENT
  Sex: Female
  Weight: 160 kg

DRUGS (2)
  1. BRIDION [Suspect]
     Active Substance: SUGAMMADEX SODIUM
     Indication: Bronchoscopy
     Route: 042
     Dates: start: 202507
  2. BRIDION [Suspect]
     Active Substance: SUGAMMADEX SODIUM
     Indication: Bronchoscopy
     Route: 042
     Dates: start: 202507

REACTIONS (1)
  - Anaphylactic reaction [Recovered/Resolved]

NARRATIVE: CASE EVENT DATE: 20250701
